FAERS Safety Report 5087334-5 (Version None)
Quarter: 2006Q3

REPORT INFORMATION
  Report Type: 
  Country: None (occurrence: None)
  Receive Date: 20060824
  Receipt Date: 20060810
  Transmission Date: 20061208
  Serious: Yes (Hospitalization, Other)
  Sender: FDA-Public Use
  Company Number: US-BAYER-200613639GDS

PATIENT
  Sex: Female
  Weight: 90 kg

DRUGS (8)
  1. NIFEDIPINE [Suspect]
     Indication: HYPERTENSION
     Dosage: UNIT DOSE: 60 MG
     Route: 065
  2. MOTRIN [Suspect]
     Indication: SPINAL OSTEOARTHRITIS
     Dosage: UNIT DOSE: 800 MG
     Route: 065
  3. CELEBREX [Suspect]
     Indication: SPINAL OSTEOARTHRITIS
     Dosage: UNIT DOSE: 200 MG
     Route: 065
     Dates: end: 20040101
  4. PERCOCET [Concomitant]
     Indication: DRUG USE FOR UNKNOWN INDICATION
     Route: 065
  5. SOMA [Concomitant]
     Indication: DRUG USE FOR UNKNOWN INDICATION
     Route: 065
  6. CLONIDINE [Concomitant]
     Indication: DRUG USE FOR UNKNOWN INDICATION
     Dosage: UNIT DOSE: 0.3 MG
     Route: 065
  7. LISINOPRIL [Concomitant]
     Indication: DRUG USE FOR UNKNOWN INDICATION
     Route: 065
  8. BUMEX [Concomitant]
     Indication: DRUG USE FOR UNKNOWN INDICATION
     Dosage: UNIT DOSE: 2 MG
     Route: 065

REACTIONS (4)
  - BLOOD PRESSURE INCREASED [None]
  - MYOCARDIAL INFARCTION [None]
  - TOOTH DISORDER [None]
  - WEIGHT DECREASED [None]
